FAERS Safety Report 17420078 (Version 4)
Quarter: 2020Q2

REPORT INFORMATION
  Report Type: Spontaneous
  Country: US (occurrence: US)
  Receive Date: 20200214
  Receipt Date: 20200504
  Transmission Date: 20200713
  Serious: No
  Sender: FDA-Public Use
  Company Number: US-PFIZER INC-2020066715

PATIENT
  Age: 74 Year
  Sex: Female
  Weight: 97.52 kg

DRUGS (3)
  1. TOVIAZ [Suspect]
     Active Substance: FESOTERODINE FUMARATE
     Indication: INCONTINENCE
     Dosage: 8 MG, 1X/DAY (IN THE MORNING)
     Route: 048
     Dates: start: 201501
  2. TOVIAZ [Suspect]
     Active Substance: FESOTERODINE FUMARATE
     Indication: POLLAKIURIA
  3. TOVIAZ [Suspect]
     Active Substance: FESOTERODINE FUMARATE
     Indication: MICTURITION URGENCY

REACTIONS (6)
  - Fall [Unknown]
  - Memory impairment [Unknown]
  - Hypoacusis [Unknown]
  - Vision blurred [Recovered/Resolved]
  - Gait disturbance [Unknown]
  - Malaise [Unknown]
